FAERS Safety Report 20788990 (Version 1)
Quarter: 2022Q2

REPORT INFORMATION
  Report Type: Spontaneous
  Country: US (occurrence: US)
  Receive Date: 20220505
  Receipt Date: 20220505
  Transmission Date: 20220721
  Serious: Yes (Hospitalization, Other)
  Sender: FDA-Public Use
  Company Number: US-BAYER-2022A062304

PATIENT

DRUGS (1)
  1. ALEVE [Suspect]
     Active Substance: NAPROXEN SODIUM
     Indication: Libido increased
     Dosage: UNK

REACTIONS (9)
  - Neoplasm malignant [Unknown]
  - Acquired immunodeficiency syndrome [Unknown]
  - Dependence [None]
  - Hallucination, visual [None]
  - Overdose [Unknown]
  - Anal haemorrhage [Unknown]
  - Drug effective for unapproved indication [None]
  - Wrong technique in product usage process [Unknown]
  - Wrong product administered [None]
